FAERS Safety Report 25034630 (Version 1)
Quarter: 2025Q1

REPORT INFORMATION
  Report Type: Spontaneous
  Country: US (occurrence: US)
  Receive Date: 20250304
  Receipt Date: 20250304
  Transmission Date: 20250409
  Serious: No
  Sender: CELLTRION
  Company Number: US-CELLTRION INC.-2025US002310

PATIENT

DRUGS (7)
  1. YUFLYMA [Suspect]
     Active Substance: ADALIMUMAB-AATY
     Indication: Rheumatoid arthritis
     Route: 058
     Dates: start: 20241219
  2. METHOTREXATE [Concomitant]
     Active Substance: METHOTREXATE
     Dosage: 20 MG, 1/WEEK
  3. PREDNISONE [Concomitant]
     Active Substance: PREDNISONE
  4. FOLIC ACID [Concomitant]
     Active Substance: FOLIC ACID
  5. ROSUVASTATIN [Concomitant]
     Active Substance: ROSUVASTATIN
  6. LOSARTAN [Interacting]
     Active Substance: LOSARTAN
  7. VITAMIN D NOS [Concomitant]
     Active Substance: CHOLECALCIFEROL\ERGOCALCIFEROL

REACTIONS (1)
  - Product dose omission issue [Unknown]

NARRATIVE: CASE EVENT DATE: 20250115
